FAERS Safety Report 6389207-4 (Version None)
Quarter: 2009Q4

REPORT INFORMATION
  Report Type: 
  Country: None (occurrence: None)
  Receive Date: 20091006
  Receipt Date: 20090923
  Transmission Date: 20100525
  Serious: Yes (Hospitalization, Other)
  Sender: FDA-Public Use
  Company Number: PHEH2009US09624

PATIENT
  Sex: Female

DRUGS (27)
  1. AFINITOR [Suspect]
     Indication: RENAL CELL CARCINOMA
     Dosage: 5 MG, QD
     Route: 048
     Dates: start: 20090703, end: 20090820
  2. VITAMINS NOS [Concomitant]
     Dosage: UNK
  3. FENTANYL [Concomitant]
     Indication: PAIN
     Dosage: 50 MCG Q72H
     Route: 062
  4. NEURONTIN [Concomitant]
     Indication: NEUROPATHY PERIPHERAL
     Dosage: 300 MG, BID
     Route: 048
  5. GLUCOPHAGE [Concomitant]
     Dosage: UNK
  6. INSULIN [Concomitant]
     Dosage: UNK
  7. DIOVAN HCT [Concomitant]
     Dosage: 325/25 MG QD
     Route: 048
  8. METOPROLOL [Concomitant]
     Dosage: 100 MG, BID
     Route: 048
  9. METOPROLOL [Concomitant]
     Dosage: 50 MG, BID
     Route: 048
  10. HYDROCHLOROTHIAZIDE [Concomitant]
     Dosage: 5 MG, QD
     Route: 048
  11. METFORMIN [Concomitant]
     Dosage: 1000 MG, BID
     Route: 048
  12. AMARYL [Concomitant]
     Dosage: 1 MG, BID
     Route: 048
  13. NEXIUM [Concomitant]
     Dosage: 40 MG, QHS
     Route: 048
  14. DECADRON                                /CAN/ [Concomitant]
     Dosage: 4 MG, QD
     Route: 048
  15. DECADRON                                /CAN/ [Concomitant]
     Dosage: 2 MG, QD
     Route: 048
     Dates: start: 20090701
  16. DECADRON                                /CAN/ [Concomitant]
     Dosage: 4 MG, QD
     Route: 048
     Dates: start: 20090701
  17. DECADRON                                /CAN/ [Concomitant]
     Dosage: 1 MG, QD
  18. LANTUS [Concomitant]
     Dosage: 10U QAM/20U QPM
     Route: 058
  19. LANTUS [Concomitant]
     Dosage: 10 UNITS QHS/20 UNITS QAM
     Route: 058
  20. FOSAMAX [Concomitant]
     Dosage: 70 MG, QW
     Route: 048
  21. NOVOLOG [Concomitant]
     Dosage: SLIDING SCALE
  22. IRON [Concomitant]
     Dosage: 325 MG, BID
     Route: 048
  23. FOLIC ACID [Concomitant]
     Dosage: 1 MG, QD
     Route: 048
  24. VITAMIN B6 [Concomitant]
     Dosage: 100 MG, QD
     Route: 048
  25. CALCIUM [Concomitant]
     Dosage: 500 MG, QD
     Route: 048
  26. VALTREX [Concomitant]
     Dosage: UNK
     Dates: start: 20090811, end: 20090818
  27. VITAMIN D [Concomitant]
     Dosage: 500 MG, QD
     Route: 048

REACTIONS (32)
  - ACTIVATED PARTIAL THROMBOPLASTIN TIME PROLONGED [None]
  - ANAEMIA MACROCYTIC [None]
  - ASTHENIA [None]
  - BACTERIAL INFECTION [None]
  - BLOOD GLUCOSE DECREASED [None]
  - BLOOD GLUCOSE INCREASED [None]
  - BREATH SOUNDS ABNORMAL [None]
  - COUGH [None]
  - DECREASED APPETITE [None]
  - DIARRHOEA [None]
  - DYSPNOEA [None]
  - EPISTAXIS [None]
  - HYPERTENSION [None]
  - IRON DEFICIENCY ANAEMIA [None]
  - LUNG DISORDER [None]
  - LUNG INFILTRATION [None]
  - MALIGNANT NEOPLASM PROGRESSION [None]
  - OEDEMA PERIPHERAL [None]
  - ORAL PAIN [None]
  - PAIN [None]
  - PLATELET AGGREGATION ABNORMAL [None]
  - PLATELET DISORDER [None]
  - PNEUMONIA [None]
  - PNEUMONITIS [None]
  - PNEUMOTHORAX [None]
  - PROTEIN URINE PRESENT [None]
  - PULMONARY OEDEMA [None]
  - PYREXIA [None]
  - RENAL ABSCESS [None]
  - RENAL FAILURE ACUTE [None]
  - RESPIRATORY FAILURE [None]
  - STOMATITIS [None]
